FAERS Safety Report 12657978 (Version 1)
Quarter: 2016Q3

REPORT INFORMATION
  Report Type: Spontaneous
  Country: US (occurrence: US)
  Receive Date: 20160817
  Receipt Date: 20160817
  Transmission Date: 20161109
  Serious: No
  Sender: FDA-Public Use
  Company Number: US-ACCORD-042532

PATIENT
  Age: 68 Year
  Sex: Male
  Weight: 94.35 kg

DRUGS (1)
  1. LISINOPRIL ACCORD [Suspect]
     Active Substance: LISINOPRIL
     Indication: HYPERTENSION
     Route: 048
     Dates: start: 201605, end: 20160715

REACTIONS (2)
  - Product physical issue [Unknown]
  - Malaise [Unknown]
